FAERS Safety Report 9867665 (Version 1)
Quarter: 2014Q1

REPORT INFORMATION
  Report Type: Report from Study
  Country: US (occurrence: US)
  Receive Date: 20140204
  Receipt Date: 20140204
  Transmission Date: 20141002
  Serious: Yes (Death)
  Sender: FDA-Public Use
  Company Number: US-ROCHE-1322853

PATIENT
  Sex: 0
  Weight: 49 kg

DRUGS (4)
  1. AVASTIN [Suspect]
     Indication: LUNG NEOPLASM MALIGNANT
     Route: 065
     Dates: start: 20110511
  2. AVASTIN [Suspect]
     Route: 065
  3. ALTIMA (UNK INGREDIENTS) [Concomitant]
     Route: 065
     Dates: start: 20110511
  4. DEXAMETHASON [Concomitant]
     Route: 065

REACTIONS (1)
  - Death [Fatal]
